FAERS Safety Report 21028220 (Version 1)
Quarter: 2022Q2

REPORT INFORMATION
  Report Type: Report from Study
  Country: US (occurrence: US)
  Receive Date: 20220630
  Receipt Date: 20220630
  Transmission Date: 20220721
  Serious: No
  Sender: FDA-Public Use
  Company Number: US-INCYTE CORPORATION-2022IN005162

PATIENT

DRUGS (1)
  1. JAKAFI [Suspect]
     Active Substance: RUXOLITINIB
     Indication: Blood disorder
     Route: 065

REACTIONS (4)
  - Skin ulcer [Unknown]
  - Drug effective for unapproved indication [Unknown]
  - Off label use [Unknown]
  - Product availability issue [Unknown]
